FAERS Safety Report 5751614-8 (Version None)
Quarter: 2008Q2

REPORT INFORMATION
  Report Type: 
  Country: None (occurrence: None)
  Receive Date: 20080528
  Receipt Date: 20080520
  Transmission Date: 20081010
  Serious: Yes (Other)
  Sender: FDA-Public Use
  Company Number: PHHY2008BR08344

PATIENT
  Sex: Male

DRUGS (6)
  1. DIOVAN HCT [Suspect]
     Indication: BLOOD PRESSURE
     Route: 048
     Dates: start: 20080516
  2. HUMULIN N [Concomitant]
     Indication: DIABETES MELLITUS
     Dosage: 42 IU IN THE MORNING AFTER BREAKFAST
     Route: 058
  3. METFORMIN HCL [Concomitant]
     Indication: DIABETES MELLITUS
     Dosage: UNK, BID
     Route: 048
  4. AAS [Concomitant]
     Route: 048
  5. ENDOFOLIN [Concomitant]
     Indication: DYSPEPSIA
     Route: 048
  6. ATENOLOL [Concomitant]
     Indication: BLOOD PRESSURE
     Route: 048
     Dates: start: 20080516

REACTIONS (3)
  - BLOOD GLUCOSE ABNORMAL [None]
  - BLOOD PRESSURE ABNORMAL [None]
  - HYPERHIDROSIS [None]
